FAERS Safety Report 9689205 (Version 2)
Quarter: 2013Q4

REPORT INFORMATION
  Report Type: Spontaneous
  Country: HR (occurrence: HR)
  Receive Date: 20131114
  Receipt Date: 20131204
  Transmission Date: 20140711
  Serious: Yes (Other)
  Sender: FDA-Public Use
  Company Number: HR-TEVA-442912ISR

PATIENT
  Age: 29 Year
  Sex: Female

DRUGS (4)
  1. KLAVOCIN [Suspect]
     Indication: CYSTITIS
     Dosage: 2 DOSAGE FORMS DAILY; 125MG OF CLAVULANATE POTASSIUM + 875MG OF AMOXICILLIN TRIHYDRATE
     Route: 048
     Dates: start: 20130903, end: 20130909
  2. LAMEPTIL [Concomitant]
     Indication: IDIOPATHIC GENERALISED EPILEPSY
     Dosage: 100 MILLIGRAM DAILY;
     Route: 048
  3. KEPPRA 250 MG FILMOM OBLOZENE TABLETE [Concomitant]
     Indication: IDIOPATHIC GENERALISED EPILEPSY
     Dosage: 750 MILLIGRAM DAILY;
     Route: 048
  4. DEPAKINE CHRONO [Concomitant]
     Indication: IDIOPATHIC GENERALISED EPILEPSY
     Dosage: 500 MILLIGRAM DAILY;
     Route: 048

REACTIONS (3)
  - Diarrhoea [Recovered/Resolved]
  - Vomiting [Recovered/Resolved]
  - Dehydration [Recovered/Resolved]
